FAERS Safety Report 5861339-6 (Version None)
Quarter: 2008Q3

REPORT INFORMATION
  Report Type: 
  Country: None (occurrence: None)
  Receive Date: 20080827
  Receipt Date: 20080423
  Transmission Date: 20090109
  Serious: No
  Sender: FDA-Public Use
  Company Number: US-ABBOTT-08P-163-0448644-00

PATIENT
  Sex: Male
  Weight: 88.53 kg

DRUGS (3)
  1. NIASPAN [Suspect]
     Indication: HYPERLIPIDAEMIA
     Route: 048
     Dates: start: 20050101
  2. DOXAZOSIN MESYLATE [Concomitant]
     Indication: HYPERTENSION
  3. IRBESARTAN [Concomitant]
     Indication: HYPERTENSION

REACTIONS (2)
  - EYE IRRITATION [None]
  - EYELIDS PRURITUS [None]
